FAERS Safety Report 16081714 (Version 3)
Quarter: 2019Q1

REPORT INFORMATION
  Report Type: Spontaneous
  Country: GB (occurrence: GB)
  Receive Date: 20190316
  Receipt Date: 20190331
  Transmission Date: 20190418
  Serious: Yes (Death)
  Sender: FDA-Public Use
  Company Number: PHHY2019GB058401

PATIENT
  Age: 27 Year
  Sex: Male

DRUGS (4)
  1. CALCIUM FOLINATE [Suspect]
     Active Substance: LEUCOVORIN CALCIUM
     Indication: MONOCLONAL B-CELL LYMPHOCYTOSIS
     Dosage: UNK
     Route: 065
  2. METHOTREXATE. [Suspect]
     Active Substance: METHOTREXATE
     Indication: MONOCLONAL B-CELL LYMPHOCYTOSIS
     Dosage: UNK (3 G PER SQUARE METER OF BODY SURFACE AREA)
     Route: 065
  3. METHOTREXATE. [Suspect]
     Active Substance: METHOTREXATE
     Indication: EPSTEIN-BARR VIRUS ASSOCIATED LYMPHOPROLIFERATIVE DISORDER
  4. ACICLOVIR [Suspect]
     Active Substance: ACYCLOVIR
     Indication: MONOCLONAL B-CELL LYMPHOCYTOSIS
     Dosage: 12.5 MG/KG, TID
     Route: 065

REACTIONS (2)
  - Renal failure [Fatal]
  - Hepatic failure [Fatal]
